FAERS Safety Report 19415422 (Version 1)
Quarter: 2021Q2

REPORT INFORMATION
  Report Type: Spontaneous
  Country: PL (occurrence: PL)
  Receive Date: 20210615
  Receipt Date: 20210615
  Transmission Date: 20210717
  Serious: Yes (Other)
  Sender: FDA-Public Use
  Company Number: PL-ROCHE-2845529

PATIENT
  Age: 65 Year
  Sex: Female

DRUGS (2)
  1. GAZYVARO [Suspect]
     Active Substance: OBINUTUZUMAB
     Indication: FOLLICULAR LYMPHOMA
     Route: 042
     Dates: start: 202006, end: 202101
  2. BENDAMUSTINE [Suspect]
     Active Substance: BENDAMUSTINE
     Indication: FOLLICULAR LYMPHOMA
     Route: 065
     Dates: start: 202006, end: 202101

REACTIONS (5)
  - Herpes zoster [Unknown]
  - COVID-19 [Unknown]
  - Cytopenia [Unknown]
  - Arrhythmia [Unknown]
  - Diarrhoea infectious [Unknown]
